FAERS Safety Report 7767710-X (Version None)
Quarter: 2011Q3

REPORT INFORMATION
  Report Type: 
  Country: None (occurrence: None)
  Receive Date: 20110922
  Receipt Date: 20110916
  Transmission Date: 20111222
  Serious: Yes (Other)
  Sender: FDA-Public Use
  Company Number: GB-PFIZER INC-2011219654

PATIENT
  Age: 38 Year
  Sex: Female

DRUGS (2)
  1. NEURONTIN [Suspect]
     Dosage: 100 MG
     Dates: start: 20110915
  2. NEURONTIN [Suspect]
     Indication: CYSTITIS INTERSTITIAL
     Dosage: 300 MG
     Dates: start: 20110914

REACTIONS (6)
  - TREMOR [None]
  - VISUAL IMPAIRMENT [None]
  - PARAESTHESIA [None]
  - HYPOAESTHESIA [None]
  - MOVEMENT DISORDER [None]
  - THIRST [None]
